FAERS Safety Report 10451332 (Version 2)
Quarter: 2014Q3

REPORT INFORMATION
  Report Type: Report from Study
  Country: IL (occurrence: IL)
  Receive Date: 20140912
  Receipt Date: 20140912
  Transmission Date: 20150326
  Serious: Yes (Other)
  Sender: FDA-Public Use
  Company Number: IL-ABBVIE-13P-082-1166758-00

PATIENT
  Sex: Female
  Weight: 56 kg

DRUGS (1)
  1. HUMIRA [Suspect]
     Active Substance: ADALIMUMAB
     Indication: CROHN^S DISEASE
     Route: 058
     Dates: start: 20120906

REACTIONS (10)
  - Abdominal pain upper [Unknown]
  - Injection site pain [Unknown]
  - Diarrhoea [Unknown]
  - Haemorrhage in pregnancy [Recovered/Resolved]
  - Crohn^s disease [Unknown]
  - Injection site haematoma [Unknown]
  - Drug ineffective [Unknown]
  - Asthenia [Unknown]
  - Discomfort [Unknown]
  - Premature labour [Recovered/Resolved]
